FAERS Safety Report 9188062 (Version 1)
Quarter: 2013Q1

REPORT INFORMATION
  Report Type: Spontaneous
  Country: US (occurrence: US)
  Receive Date: 20130325
  Receipt Date: 20130325
  Transmission Date: 20140127
  Serious: No
  Sender: FDA-Public Use
  Company Number: US-MYLANLABS-2013S1001138

PATIENT
  Sex: Female

DRUGS (8)
  1. FENTANYL TRANSDERMAL SYSTEM [Suspect]
     Indication: PAIN
     Dosage: CHANGES Q. 72 HOURS.
     Route: 062
     Dates: start: 201211
  2. CVS SPECTRAVITE PERFORMANCE [Concomitant]
  3. MENTAX [Concomitant]
     Route: 048
  4. MONTELUKAST [Concomitant]
  5. METFORMIN [Concomitant]
  6. VITAMIN B12 [Concomitant]
  7. DIOVAN [Concomitant]
  8. ASPIRIN [Concomitant]

REACTIONS (2)
  - Alopecia [Not Recovered/Not Resolved]
  - Flushing [Not Recovered/Not Resolved]
